FAERS Safety Report 8054794-7 (Version None)
Quarter: 2012Q1

REPORT INFORMATION
  Report Type: 
  Country: None (occurrence: None)
  Receive Date: 20120112
  Receipt Date: 20120103
  Transmission Date: 20120608
  Serious: Yes (Hospitalization)
  Sender: FDA-Public Use
  Company Number: 1152854

PATIENT
  Age: 70 Year
  Sex: Female

DRUGS (5)
  1. (NAVOBAN) [Concomitant]
  2. (RANIDIL) [Concomitant]
  3. CARBOPLATIN [Suspect]
     Indication: OVARIAN CANCER
     Dosage: 300 MG CYCLIC, INTRAVENOUS (NOT OTHERWISE SPECIFIED)
     Route: 042
     Dates: start: 20110906, end: 20111216
  4. GEMCITABINE HYDROCHLORIDE [Concomitant]
  5. DEXAMETHASONE SODIUM PHOSPHATE [Concomitant]

REACTIONS (3)
  - ERYTHEMA [None]
  - ABDOMINAL PAIN UPPER [None]
  - THROAT IRRITATION [None]
